FAERS Safety Report 6219679-7 (Version None)
Quarter: 2009Q2

REPORT INFORMATION
  Report Type: 
  Country: None (occurrence: None)
  Receive Date: 20090609
  Receipt Date: 20090528
  Transmission Date: 20091009
  Serious: Yes (Other)
  Sender: FDA-Public Use
  Company Number: US-PFIZER INC-2006071149

PATIENT
  Sex: Female

DRUGS (10)
  1. PROVERA [Suspect]
     Indication: HORMONE REPLACEMENT THERAPY
     Dosage: UNK
     Route: 048
     Dates: start: 19980601, end: 19991116
  2. PROVERA [Suspect]
     Dosage: UNK
     Route: 048
     Dates: start: 20011114, end: 20020325
  3. MEDROXYPROGESTERONE ACETATE TABLET [Suspect]
     Indication: HORMONE REPLACEMENT THERAPY
     Route: 048
     Dates: start: 19980601, end: 19991116
  4. MEDROXYPROGESTERONE ACETATE TABLET [Suspect]
     Dosage: UNK
     Route: 048
     Dates: start: 20011114, end: 20020325
  5. PREMARIN [Suspect]
     Indication: HORMONE REPLACEMENT THERAPY
     Dosage: UNK
     Route: 065
     Dates: start: 19980601, end: 19991116
  6. PREMARIN [Suspect]
     Dosage: UNK
     Route: 065
     Dates: start: 20011114, end: 20020325
  7. PREMPRO [Suspect]
     Indication: HORMONE REPLACEMENT THERAPY
     Route: 065
     Dates: start: 19991117, end: 20011113
  8. NORVASC [Concomitant]
     Indication: HYPERTENSION
     Dosage: UNK
     Dates: start: 19990701
  9. DIOVAN [Concomitant]
     Indication: HYPERTENSION
     Dosage: UNK
     Dates: start: 19990701
  10. LIPITOR [Concomitant]
     Indication: BLOOD CHOLESTEROL INCREASED
     Dosage: UNK
     Dates: start: 20001201

REACTIONS (1)
  - BREAST CANCER FEMALE [None]
